FAERS Safety Report 8856737 (Version 1)
Quarter: 2012Q4

REPORT INFORMATION
  Report Type: Spontaneous
  Country: DK (occurrence: None)
  Receive Date: 20121019
  Receipt Date: 20121019
  Transmission Date: 20130627
  Serious: Yes (Hospitalization)
  Sender: FDA-Public Use
  Company Number: 2012MA012298

PATIENT
  Age: 65 Year
  Sex: Male

DRUGS (8)
  1. EPIRUBICIN [Suspect]
     Indication: MALIGNANT NEOPLASM OF STOMACH
     Dates: start: 20120509
  2. BENDROFLUMETHIAZIDE [Suspect]
     Route: 048
  3. CAPECITABINE [Suspect]
     Indication: MALIGNANT NEOPLASM OF STOMACH
     Route: 048
     Dates: start: 20120514
  4. CISPLATIN [Suspect]
     Indication: MALIGNANT NEOPLASM OF STOMACH
     Route: 042
     Dates: start: 20120514
  5. CANDESARTAN [Suspect]
     Route: 048
  6. ACETYLSALICYLIC ACID [Suspect]
     Route: 048
  7. BEVACIZUMAB [Suspect]
     Dates: start: 20120509
  8. LIPITOR [Suspect]
     Route: 048

REACTIONS (4)
  - Loss of consciousness [None]
  - Presyncope [None]
  - Constipation [None]
  - Blood potassium decreased [None]
